FAERS Safety Report 9259493 (Version 7)
Quarter: 2016Q3

REPORT INFORMATION
  Report Type: Spontaneous
  Country: US (occurrence: US)
  Receive Date: 20130428
  Receipt Date: 20160708
  Transmission Date: 20161109
  Serious: Yes (Hospitalization, Disabling, Other)
  Sender: FDA-Public Use
  Company Number: US-009507513-1304USA014374

PATIENT
  Sex: Female

DRUGS (4)
  1. MIRTAZAPINE. [Suspect]
     Active Substance: MIRTAZAPINE
     Indication: SCHIZOPHRENIA
     Dosage: 15 MG, UNK
     Route: 048
     Dates: start: 20120618, end: 201212
  2. RISPERDAL [Suspect]
     Active Substance: RISPERIDONE
     Route: 065
  3. REMERON [Suspect]
     Active Substance: MIRTAZAPINE
     Indication: SCHIZOPHRENIA
     Dosage: UNK
     Route: 048
     Dates: start: 201204
  4. ABILIFY [Suspect]
     Active Substance: ARIPIPRAZOLE
     Route: 065

REACTIONS (26)
  - Gliosis [Unknown]
  - Ventricular drainage [Recovered/Resolved]
  - Papilloedema [Not Recovered/Not Resolved]
  - High density lipoprotein decreased [Unknown]
  - Abdominal pain [Unknown]
  - Tension headache [Recovering/Resolving]
  - Major depression [Not Recovered/Not Resolved]
  - Balance disorder [Unknown]
  - Sleep apnoea syndrome [Unknown]
  - Nausea [Not Recovered/Not Resolved]
  - Optic nerve disorder [Unknown]
  - Obesity [Unknown]
  - Benign neoplasm of eye [Not Recovered/Not Resolved]
  - Vision blurred [Not Recovered/Not Resolved]
  - Headache [Not Recovered/Not Resolved]
  - Hydrocephalus [Recovered/Resolved]
  - Shunt malfunction [Unknown]
  - Vitamin B12 decreased [Unknown]
  - Weight increased [Not Recovered/Not Resolved]
  - Ocular hypertension [Unknown]
  - Intracranial pressure increased [Not Recovered/Not Resolved]
  - Blindness [Not Recovered/Not Resolved]
  - Breast enlargement [Unknown]
  - Body mass index increased [Unknown]
  - Gastrooesophageal reflux disease [Unknown]
  - Vitamin D deficiency [Unknown]

NARRATIVE: CASE EVENT DATE: 2012
